FAERS Safety Report 5133350-4 (Version None)
Quarter: 2006Q4

REPORT INFORMATION
  Report Type: 
  Country: None (occurrence: None)
  Receive Date: 20060831
  Receipt Date: 20060712
  Transmission Date: 20070319
  Serious: No
  Sender: FDA-Public Use
  Company Number: 2006-BP-08083BP

PATIENT
  Age: 81 Year
  Sex: Female

DRUGS (8)
  1. SPIRIVA [Suspect]
     Indication: CHRONIC OBSTRUCTIVE PULMONARY DISEASE
     Dosage: 18 MCG (18 MCG),IH
     Dates: start: 20060101
  2. SPIRIVA [Suspect]
  3. LISINOPRIL [Concomitant]
  4. FUROSEMIDE [Concomitant]
  5. ASA (ACETYSALICYLIC ACID) [Concomitant]
  6. METOPROLOL TARTRATE [Concomitant]
  7. DIGOXIN [Concomitant]
  8. ZOCOR [Concomitant]

REACTIONS (5)
  - ANOREXIA [None]
  - COUGH [None]
  - DRUG INEFFECTIVE [None]
  - SECRETION DISCHARGE [None]
  - WEIGHT DECREASED [None]
